FAERS Safety Report 22191114 (Version 2)
Quarter: 2025Q2

REPORT INFORMATION
  Report Type: Spontaneous
  Country: US (occurrence: US)
  Receive Date: 20230410
  Receipt Date: 20250609
  Transmission Date: 20250717
  Serious: Yes (Other)
  Sender: APOTEX
  Company Number: US-APOTEX-2023AP006559

PATIENT
  Sex: Female

DRUGS (1)
  1. TAMOXIFEN [Suspect]
     Active Substance: TAMOXIFEN
     Indication: Breast cancer stage IV
     Dosage: 20 MILLIGRAM, QD (TOTAL CUMULATIVE DOSE OF 13.2 GRAMS)
     Route: 065

REACTIONS (3)
  - Retinopathy [Unknown]
  - Macular cyst [Unknown]
  - Pseudocyst [Unknown]
